FAERS Safety Report 17039812 (Version 2)
Quarter: 2021Q1

REPORT INFORMATION
  Report Type: Spontaneous
  Country: US (occurrence: US)
  Receive Date: 20191116
  Receipt Date: 20210219
  Transmission Date: 20210419
  Serious: No
  Sender: FDA-Public Use
  Company Number: US-SHIRE-US201939117

PATIENT
  Sex: Male

DRUGS (1)
  1. VPRIV [Suspect]
     Active Substance: VELAGLUCERASE ALFA
     Indication: GAUCHER^S DISEASE
     Dosage: UNK, 1X/WEEK
     Route: 042
     Dates: start: 20111019

REACTIONS (2)
  - Product dose omission issue [Unknown]
  - Cholelithiasis [Recovered/Resolved]
